FAERS Safety Report 6668503-7 (Version None)
Quarter: 2010Q2

REPORT INFORMATION
  Report Type: 
  Country: None (occurrence: None)
  Receive Date: 20100402
  Receipt Date: 20100324
  Transmission Date: 20101027
  Serious: Yes (Hospitalization)
  Sender: FDA-Public Use
  Company Number: A-US2010-35143

PATIENT
  Age: 74 Year
  Sex: Female

DRUGS (2)
  1. TRACLEER [Suspect]
     Indication: PULMONARY ARTERIAL HYPERTENSION
     Dosage: ORAL
     Route: 048
     Dates: start: 20080220
  2. REVATIO [Concomitant]

REACTIONS (2)
  - COLON CANCER [None]
  - MYOCARDIAL INFARCTION [None]
